FAERS Safety Report 24826141 (Version 2)
Quarter: 2025Q1

REPORT INFORMATION
  Report Type: Spontaneous
  Country: US (occurrence: US)
  Receive Date: 20250109
  Receipt Date: 20250109
  Transmission Date: 20250408
  Serious: Yes (Hospitalization, Other)
  Sender: IPSEN BIOPHARMACEUTICALS, INC.
  Company Number: US-IPSEN Group, Research and Development-2025-00530

PATIENT
  Age: 30 Year
  Sex: Male
  Weight: 67.9 kg

DRUGS (10)
  1. IQIRVO [Suspect]
     Active Substance: ELAFIBRANOR
     Indication: Primary biliary cholangitis
     Dosage: 1 TABLET ONCE DAILY
     Route: 048
     Dates: start: 20241004
  2. METHOCARBANOL [Concomitant]
  3. FEXOFENADINE HYDROCHLORIDE [Concomitant]
     Active Substance: FEXOFENADINE HYDROCHLORIDE
  4. HYDROXYZINE HYDROCHLORIDE [Concomitant]
     Active Substance: HYDROXYZINE HYDROCHLORIDE
  5. BETAMETHASONE DIPROP AUGMENTED [Concomitant]
  6. AIMOVIG [Concomitant]
     Active Substance: ERENUMAB-AOOE
  7. MAGNESIUM GLYCINATE [Concomitant]
     Active Substance: MAGNESIUM GLYCINATE
  8. UBRELVY [Concomitant]
     Active Substance: UBROGEPANT
  9. MIRTAZAPINE [Concomitant]
     Active Substance: MIRTAZAPINE
  10. EPINEPHRINE [Concomitant]
     Active Substance: EPINEPHRINE

REACTIONS (2)
  - Deafness unilateral [Recovered/Resolved]
  - Product dose omission issue [Unknown]

NARRATIVE: CASE EVENT DATE: 20241107
